FAERS Safety Report 5498287-X (Version None)
Quarter: 2007Q4

REPORT INFORMATION
  Report Type: 
  Country: None (occurrence: None)
  Receive Date: 20071025
  Receipt Date: 20070425
  Transmission Date: 20080405
  Serious: No
  Sender: FDA-Public Use
  Company Number: A0648722A

PATIENT
  Age: 91 Year
  Sex: Female

DRUGS (3)
  1. ADVAIR DISKUS 100/50 [Suspect]
     Indication: CHRONIC OBSTRUCTIVE PULMONARY DISEASE
     Dosage: 1PUFF TWICE PER DAY
     Route: 055
     Dates: start: 20020101
  2. COMBIVENT [Concomitant]
  3. EYE DROPS [Concomitant]

REACTIONS (3)
  - DRUG INEFFECTIVE [None]
  - DYSPNOEA [None]
  - LIVEDO RETICULARIS [None]
